FAERS Safety Report 5192094-3 (Version None)
Quarter: 2006Q4

REPORT INFORMATION
  Report Type: 
  Country: None (occurrence: None)
  Receive Date: 20061219
  Receipt Date: 20061206
  Transmission Date: 20070319
  Serious: Yes (Hospitalization)
  Sender: FDA-Public Use
  Company Number: WAES 0611USA00811

PATIENT
  Age: 47 Year
  Sex: Female

DRUGS (4)
  1. DECADRON [Suspect]
     Indication: GLIOBLASTOMA MULTIFORME
     Dosage: PO
     Route: 048
     Dates: start: 20060901, end: 20061001
  2. BACTRIM [Suspect]
     Indication: DRUG USE FOR UNKNOWN INDICATION
     Dates: end: 20061020
  3. TEMODAR [Suspect]
     Indication: DRUG USE FOR UNKNOWN INDICATION
     Dosage: 75 MG/M[2]
     Dates: end: 20060925
  4. KEPPRA [Concomitant]

REACTIONS (7)
  - ANORECTAL CELLULITIS [None]
  - APLASTIC ANAEMIA [None]
  - FEBRILE NEUTROPENIA [None]
  - HAEMORRHOIDS [None]
  - RADIATION MYELOPATHY [None]
  - THROMBOCYTOPENIA [None]
  - WHITE BLOOD CELL COUNT DECREASED [None]
